FAERS Safety Report 9103442 (Version 4)
Quarter: 2015Q2

REPORT INFORMATION
  Report Type: Spontaneous
  Country: GB (occurrence: GB)
  Receive Date: 20130219
  Receipt Date: 20150608
  Transmission Date: 20150821
  Serious: Yes (Death, Hospitalization, Other)
  Sender: FDA-Public Use
  Company Number: GB-TEVA-385614ISR

PATIENT
  Age: 9 Month
  Sex: Female
  Weight: 8.5 kg

DRUGS (6)
  1. PARACETAMOL [Concomitant]
     Active Substance: ACETAMINOPHEN
  2. PHENYTOIN. [Suspect]
     Active Substance: PHENYTOIN
     Indication: STATUS EPILEPTICUS
     Dosage: 180MG OVER 20 MINUTES
     Route: 042
     Dates: end: 20121128
  3. MIDAZOLAM [Suspect]
     Active Substance: MIDAZOLAM\MIDAZOLAM HYDROCHLORIDE
     Indication: SEIZURE
     Dosage: OROMUCOSAL SOLUTION, 2.5MG AT 5 MINUTES AND 15 MINUTES
     Route: 002
     Dates: end: 20121128
  4. DIAZEPAM. [Concomitant]
     Active Substance: DIAZEPAM
  5. EPILIM [Suspect]
     Active Substance: VALPROATE SODIUM
     Indication: SEIZURE
     Dosage: 280 MILLIGRAM DAILY;
     Route: 048
     Dates: start: 20120718, end: 20121128
  6. KEPPRA [Suspect]
     Active Substance: LEVETIRACETAM
     Indication: EPILEPSY
     Dosage: 240 MILLIGRAM DAILY;
     Route: 048
     Dates: start: 20120709, end: 20121128

REACTIONS (6)
  - Tachycardia [Not Recovered/Not Resolved]
  - Cardiac arrest [Fatal]
  - Prescribed overdose [Unknown]
  - Respiratory acidosis [Fatal]
  - Hypoventilation [Not Recovered/Not Resolved]
  - Drug ineffective [Fatal]

NARRATIVE: CASE EVENT DATE: 20121127
